FAERS Safety Report 24627888 (Version 2)
Quarter: 2024Q4

REPORT INFORMATION
  Report Type: Spontaneous
  Country: JP (occurrence: JP)
  Receive Date: 20241117
  Receipt Date: 20241213
  Transmission Date: 20250115
  Serious: Yes (Hospitalization, Other)
  Sender: AMGEN
  Company Number: JP-KYOWAKIRIN-2024KK025380

PATIENT

DRUGS (2)
  1. ROMIPLOSTIM [Suspect]
     Active Substance: ROMIPLOSTIM
     Indication: Aplastic anaemia
     Dosage: UNK
     Route: 058
  2. DARBEPOETIN ALFA [Suspect]
     Active Substance: DARBEPOETIN ALFA
     Indication: Nephrogenic anaemia
     Dosage: UNK
     Route: 065

REACTIONS (1)
  - Cerebral infarction [Unknown]
